FAERS Safety Report 6370940-5 (Version None)
Quarter: 2009Q3

REPORT INFORMATION
  Report Type: 
  Country: None (occurrence: None)
  Receive Date: 20090923
  Receipt Date: 20071121
  Transmission Date: 20100115
  Serious: Yes (Hospitalization)
  Sender: FDA-Public Use
  Company Number: US-ASTRAZENECA-2006UW22768

PATIENT
  Age: 12688 Day
  Sex: Male
  Weight: 105.7 kg

DRUGS (14)
  1. SEROQUEL [Suspect]
     Indication: DEPRESSION
     Dosage: 25 MG TO 200 MG
     Route: 048
     Dates: start: 20010508
  2. SEROQUEL [Suspect]
     Indication: BIPOLAR DISORDER
     Dosage: 25 MG TO 200 MG
     Route: 048
     Dates: start: 20010508
  3. SEROQUEL [Suspect]
     Indication: SLEEP DISORDER
     Dosage: 25 MG TO 200 MG
     Route: 048
     Dates: start: 20010508
  4. SEROQUEL [Suspect]
     Route: 048
     Dates: start: 20040801, end: 20050801
  5. SEROQUEL [Suspect]
     Route: 048
     Dates: start: 20040801, end: 20050801
  6. SEROQUEL [Suspect]
     Route: 048
     Dates: start: 20040801, end: 20050801
  7. CELEXA [Concomitant]
     Dates: start: 20000823
  8. SYNTHROID [Concomitant]
     Indication: HYPERTHYROIDISM
     Dosage: 0.125 MG TO 0.2 MG
     Route: 048
     Dates: start: 20000823
  9. ZYPREXA [Concomitant]
     Dates: start: 20010122
  10. RESTORIL [Concomitant]
     Dates: start: 20010122
  11. AMBIEN [Concomitant]
     Route: 048
     Dates: start: 20010129
  12. DEPAKOTE [Concomitant]
     Indication: BIPOLAR DISORDER
     Dosage: 500 MG TO 2500 MG
     Route: 048
     Dates: start: 20010129
  13. TOPAMAX [Concomitant]
     Dates: start: 20010508
  14. LITHIUM [Concomitant]
     Indication: BIPOLAR DISORDER
     Dosage: 600 MG TO 800 MG
     Route: 048
     Dates: start: 20020606

REACTIONS (3)
  - DIABETES MELLITUS [None]
  - DIABETES MELLITUS INADEQUATE CONTROL [None]
  - TYPE 2 DIABETES MELLITUS [None]
